FAERS Safety Report 23757219 (Version 2)
Quarter: 2024Q2

REPORT INFORMATION
  Report Type: Spontaneous
  Country: JP (occurrence: JP)
  Receive Date: 20240418
  Receipt Date: 20240426
  Transmission Date: 20240716
  Serious: Yes (Other)
  Sender: FDA-Public Use
  Company Number: JP-MSD-2404JPN001908J

PATIENT
  Age: 84 Year
  Sex: Male

DRUGS (5)
  1. KEYTRUDA [Suspect]
     Active Substance: PEMBROLIZUMAB
     Indication: Malignant neoplasm of renal pelvis
     Dosage: UNK
     Route: 041
  2. MAGNESIUM OXIDE [Concomitant]
     Active Substance: MAGNESIUM OXIDE
     Dosage: UNK
     Route: 065
  3. DEXTROMETHORPHAN HYDROBROMIDE [Concomitant]
     Active Substance: DEXTROMETHORPHAN HYDROBROMIDE
     Dosage: UNK
     Route: 065
  4. PIRENOXINE [Concomitant]
     Active Substance: PIRENOXINE
     Dosage: UNK
     Route: 065
  5. DIQUAFOSOL TETRASODIUM [Concomitant]
     Active Substance: DIQUAFOSOL TETRASODIUM
     Dosage: UNK
     Route: 065

REACTIONS (1)
  - Immune-mediated hepatic disorder [Unknown]
